FAERS Safety Report 6265540-1 (Version None)
Quarter: 2009Q3

REPORT INFORMATION
  Report Type: 
  Country: None (occurrence: None)
  Receive Date: 20090709
  Receipt Date: 20090709
  Transmission Date: 20100115
  Serious: No
  Sender: FDA-Public Use
  Company Number: None

PATIENT
  Sex: Female
  Weight: 38 kg

DRUGS (4)
  1. CIMZIA [Suspect]
     Indication: NEUROPATHY PERIPHERAL
     Dosage: SC
     Route: 058
     Dates: start: 20081229, end: 20081229
  2. CIMZIA [Suspect]
     Indication: NEUROPATHY PERIPHERAL
     Dosage: SC
     Route: 058
     Dates: start: 20090101, end: 20090428
  3. METRONIDAZOLE [Concomitant]
  4. PREDNISONE TAB [Concomitant]

REACTIONS (4)
  - CONDUCTION DISORDER [None]
  - DEMYELINATION [None]
  - MUSCLE SPASMS [None]
  - NEUROPATHY PERIPHERAL [None]
